FAERS Safety Report 5743009-8 (Version None)
Quarter: 2008Q2

REPORT INFORMATION
  Report Type: 
  Country: None (occurrence: None)
  Receive Date: 20080515
  Receipt Date: 20080515
  Transmission Date: 20081010
  Serious: No
  Sender: FDA-Public Use
  Company Number: None

PATIENT
  Age: 67 Year
  Sex: Female
  Weight: 52.6173 kg

DRUGS (1)
  1. CELLCEPT [Suspect]
     Dosage: 250 MG TWICE A DAY PO  APPROX. 3-5 DAYS
     Route: 048
     Dates: start: 20050125, end: 20050215

REACTIONS (4)
  - EAR DISORDER [None]
  - PRURITUS [None]
  - RASH [None]
  - SKIN DISCOLOURATION [None]
